FAERS Safety Report 8997211 (Version 1)
Quarter: 2013Q1

REPORT INFORMATION
  Report Type: Spontaneous
  Country: BR (occurrence: BR)
  Receive Date: 20130104
  Receipt Date: 20130104
  Transmission Date: 20140127
  Serious: Yes (Other)
  Sender: FDA-Public Use
  Company Number: BR-JNJFOC-20121214114

PATIENT
  Sex: 0

DRUGS (1)
  1. INFLIXIMAB, RECOMBINANT [Suspect]
     Indication: RHEUMATOID ARTHRITIS
     Dosage: 3-5MG/KG
     Route: 042

REACTIONS (4)
  - Cardiac output decreased [Unknown]
  - Blood pressure increased [Unknown]
  - Vascular resistance systemic increased [Unknown]
  - Stroke volume decreased [Unknown]
